FAERS Safety Report 8975072 (Version 2)
Quarter: 2013Q3

REPORT INFORMATION
  Report Type: Report from Study
  Country: MX (occurrence: MX)
  Receive Date: 20121219
  Receipt Date: 20130814
  Transmission Date: 20140515
  Serious: Yes (Hospitalization, Other)
  Sender: FDA-Public Use
  Company Number: PHHY2012MX116678

PATIENT
  Age: 66 Year
  Sex: Female

DRUGS (9)
  1. CO-DIOVAN [Suspect]
     Indication: HYPERTENSION
     Dosage: 1 DF DAILY
     Route: 048
  2. CO-DIOVAN [Suspect]
     Indication: CARDIAC DISORDER
  3. LEXAPRO [Concomitant]
     Indication: INSOMNIA
     Dosage: 1 DF DAILY
  4. RIVOTRIL [Concomitant]
     Dosage: UNK UKN, UNK
  5. EVIPRESS [Concomitant]
     Indication: HYPERTENSION
     Dosage: 1.5 DF DAILY
  6. METOPROLOL [Concomitant]
     Indication: HYPERTENSION
     Dosage: 1 TABLET DAILY
  7. FUROSEMIDE [Concomitant]
     Indication: DIURETIC THERAPY
     Dosage: 1 DF, DAILY
     Route: 048
  8. AMIODARONE [Concomitant]
     Dosage: 1 DF, DAILY
     Route: 048
  9. OMEPRAZOLE [Concomitant]
     Indication: GASTRITIS PROPHYLAXIS
     Dosage: 1 DF, DAILY
     Route: 048

REACTIONS (7)
  - Arterial occlusive disease [Recovered/Resolved]
  - Angina pectoris [Recovered/Resolved]
  - Chest pain [Recovered/Resolved]
  - Cardiac disorder [Recovered/Resolved]
  - Cyanosis [Recovered/Resolved]
  - Blood pressure fluctuation [Recovered/Resolved]
  - Arthralgia [Recovered/Resolved]
